FAERS Safety Report 17323561 (Version 1)
Quarter: 2020Q1

REPORT INFORMATION
  Report Type: Spontaneous
  Country: SK (occurrence: SK)
  Receive Date: 20200127
  Receipt Date: 20200127
  Transmission Date: 20200409
  Serious: Yes (Other)
  Sender: FDA-Public Use
  Company Number: SK-TEVA-2020-SK-1173247

PATIENT
  Age: 72 Year
  Sex: Male

DRUGS (7)
  1. LACIPIL [Concomitant]
     Active Substance: LACIDIPINE
     Indication: HYPERTENSION
     Dosage: LONG-TERM 1-0-0
     Route: 048
  2. IRBESARTAN. [Concomitant]
     Active Substance: IRBESARTAN
     Indication: HYPERTENSION
     Dosage: LONG-TERM 1-0-0
     Route: 048
  3. THIOGAMMA [Concomitant]
     Active Substance: .ALPHA.-LIPOIC ACID
     Indication: PERIPHERAL COLDNESS
     Dosage: 1-0-0
     Route: 048
     Dates: start: 20190812
  4. URAPIDIL [Concomitant]
     Active Substance: URAPIDIL
     Indication: HYPERTENSION
     Dosage: LONG-TERM 30MG-0-30MG-60MG
     Route: 048
  5. MOXONIDINE [Concomitant]
     Active Substance: MOXONIDINE
     Indication: HYPERTENSION
     Dosage: LONG-TERM 0-0-1
     Route: 048
  6. STADAMET [Concomitant]
     Active Substance: METFORMIN HYDROCHLORIDE
     Indication: DIABETES MELLITUS
     Dosage: LONG-TERM 1-0-1
  7. GABAPENTIN TEVA [Suspect]
     Active Substance: GABAPENTIN
     Indication: BACK PAIN
     Dosage: 300 MG
     Route: 048
     Dates: start: 20190812, end: 201909

REACTIONS (2)
  - Hyperhidrosis [Recovering/Resolving]
  - Loss of consciousness [Recovering/Resolving]
